FAERS Safety Report 7682392-3 (Version None)
Quarter: 2011Q3

REPORT INFORMATION
  Report Type: 
  Country: None (occurrence: None)
  Receive Date: 20110809
  Receipt Date: 20110725
  Transmission Date: 20111222
  Serious: Yes (Hospitalization)
  Sender: FDA-Public Use
  Company Number: 2011168061

PATIENT
  Age: 61 Year
  Sex: Male

DRUGS (1)
  1. DALTEPARIN SODIUM [Suspect]
     Indication: LUNG NEOPLASM MALIGNANT
     Dates: start: 20110418

REACTIONS (3)
  - PNEUMOTHORAX [None]
  - DYSPNOEA [None]
  - CONFUSIONAL STATE [None]
